FAERS Safety Report 23521465 (Version 1)
Quarter: 2024Q1

REPORT INFORMATION
  Report Type: Spontaneous
  Country: GB (occurrence: GB)
  Receive Date: 20240214
  Receipt Date: 20240214
  Transmission Date: 20240409
  Serious: Yes (Other)
  Sender: FDA-Public Use
  Company Number: GB-MLMSERVICE-2024012948004691

PATIENT
  Age: 75 Year
  Sex: Female

DRUGS (1)
  1. ZOLEDRONIC ACID [Suspect]
     Active Substance: ZOLEDRONIC ACID
     Indication: Osteoporosis

REACTIONS (3)
  - Anti-neutrophil cytoplasmic antibody positive vasculitis [Recovering/Resolving]
  - IIIrd nerve paralysis [Recovering/Resolving]
  - Off label use [Unknown]
